FAERS Safety Report 12537752 (Version 1)
Quarter: 2016Q3

REPORT INFORMATION
  Report Type: Spontaneous
  Country: IR (occurrence: IR)
  Receive Date: 20160707
  Receipt Date: 20160707
  Transmission Date: 20161109
  Serious: Yes (Hospitalization, Other)
  Sender: FDA-Public Use
  Company Number: IR-IMPAX LABORATORIES, INC-2016-IPXL-00696

PATIENT
  Age: 18 Year
  Sex: Female

DRUGS (1)
  1. DIVALPROEX SODIUM ER [Suspect]
     Active Substance: DIVALPROEX SODIUM
     Indication: SUICIDE ATTEMPT
     Dosage: 200 TABLETS (80 MG)
     Route: 065

REACTIONS (6)
  - Coma [Recovered/Resolved]
  - Hyperammonaemia [Recovered/Resolved]
  - Intentional overdose [Unknown]
  - Toxicity to various agents [Unknown]
  - Brain oedema [Unknown]
  - Optic neuritis [Unknown]
